FAERS Safety Report 14973323 (Version 1)
Quarter: 2018Q2

REPORT INFORMATION
  Report Type: Spontaneous
  Country: CA (occurrence: CA)
  Receive Date: 20180605
  Receipt Date: 20180605
  Transmission Date: 20180711
  Serious: Yes (Other)
  Sender: FDA-Public Use
  Company Number: CA-BIOVITRUM-2018CA0633

PATIENT
  Sex: Female

DRUGS (13)
  1. KINERET [Suspect]
     Active Substance: ANAKINRA
  2. SULFASALAZINE. [Suspect]
     Active Substance: SULFASALAZINE
     Route: 048
  3. INFLIXIMAB [Suspect]
     Active Substance: INFLIXIMAB
  4. METHOTREXATE. [Concomitant]
     Active Substance: METHOTREXATE
  5. HUMIRA [Suspect]
     Active Substance: ADALIMUMAB
     Route: 058
  6. HYDROXYCHLOROQUINE [Suspect]
     Active Substance: HYDROXYCHLOROQUINE
  7. ORENCIA [Suspect]
     Active Substance: ABATACEPT
  8. REMICADE [Suspect]
     Active Substance: INFLIXIMAB
     Route: 042
  9. SIMPONI [Suspect]
     Active Substance: GOLIMUMAB
     Route: 058
  10. PREDNISONE. [Concomitant]
     Active Substance: PREDNISONE
  11. ENBREL [Suspect]
     Active Substance: ETANERCEPT
     Indication: RHEUMATOID ARTHRITIS
  12. ACTEMRA [Suspect]
     Active Substance: TOCILIZUMAB
  13. DESOXIMETASON [Concomitant]

REACTIONS (5)
  - Joint swelling [Unknown]
  - Drug ineffective [Unknown]
  - Pain [Unknown]
  - Arthralgia [Unknown]
  - Red blood cell sedimentation rate abnormal [Unknown]
